FAERS Safety Report 6084103-4 (Version None)
Quarter: 2009Q1

REPORT INFORMATION
  Report Type: 
  Country: None (occurrence: None)
  Receive Date: 20090219
  Receipt Date: 20090206
  Transmission Date: 20090719
  Serious: Yes (Hospitalization)
  Sender: FDA-Public Use
  Company Number: GB-MERCK-0902USA01722

PATIENT
  Age: 44 Year
  Sex: Male

DRUGS (24)
  1. PRINIVIL [Suspect]
     Route: 048
     Dates: end: 20081101
  2. IRBESARTAN [Suspect]
     Route: 065
  3. ASPIRIN [Concomitant]
     Route: 065
  4. OMEPRAZOLE [Concomitant]
     Route: 048
  5. FUROSEMIDE [Concomitant]
     Route: 065
  6. ACETAMINOPHEN [Suspect]
     Indication: MUSCLE SPASMS
     Route: 048
  7. ACOMPLIA [Suspect]
     Indication: OBESITY
     Route: 048
     Dates: start: 20070629, end: 20081013
  8. ACOMPLIA [Suspect]
     Route: 048
     Dates: start: 20060901, end: 20070628
  9. SPIRONOLACTONE [Suspect]
     Route: 065
  10. CODEINE [Suspect]
     Indication: MUSCLE SPASMS
     Route: 065
  11. ISOSORBIDE MONONITRATE [Concomitant]
     Route: 065
  12. PSYLLIUM HUSK [Concomitant]
     Route: 065
  13. VESICARE [Concomitant]
     Route: 065
  14. NITROGLYCERIN [Concomitant]
     Route: 065
  15. ATENOLOL [Concomitant]
     Route: 065
  16. QUININE SULFATE [Concomitant]
     Route: 065
  17. TRIMETHOPRIM [Concomitant]
     Route: 065
  18. NITRAZEPAM [Concomitant]
     Route: 065
  19. OMACOR [Concomitant]
     Route: 065
  20. LIDOCAINE [Concomitant]
     Route: 065
  21. ATORVASTATIN [Concomitant]
     Route: 065
  22. BISOPROLOL FUMARATE [Concomitant]
     Route: 065
  23. DILTIAZEM HYDROCHLORIDE [Concomitant]
     Route: 065
  24. SOLIFENACIN SUCCINATE [Concomitant]
     Route: 065

REACTIONS (14)
  - CARDIAC FIBRILLATION [None]
  - CONSTIPATION [None]
  - DYSPEPSIA [None]
  - FEAR OF EATING [None]
  - GASTROOESOPHAGEAL REFLUX DISEASE [None]
  - HAEMORRHOIDS [None]
  - HYPERTENSION [None]
  - NAUSEA [None]
  - PYREXIA [None]
  - RECTAL HAEMORRHAGE [None]
  - RENAL FAILURE [None]
  - RENAL PAIN [None]
  - VOMITING [None]
  - WEIGHT INCREASED [None]
